FAERS Safety Report 11798217 (Version 2)
Quarter: 2019Q1

REPORT INFORMATION
  Report Type: Report from Study
  Country: DE (occurrence: DE)
  Receive Date: 20151203
  Receipt Date: 20190214
  Transmission Date: 20190417
  Serious: Yes (Other)
  Sender: FDA-Public Use
  Company Number: DE-ELI_LILLY_AND_COMPANY-DE201511009576

PATIENT
  Age: 60 Year

DRUGS (3)
  1. AFATINIB [Suspect]
     Active Substance: AFATINIB
     Indication: CHOLANGIOCARCINOMA
     Dosage: 30 MG, QD
     Route: 042
  2. GEMCITABINE HYDROCHLORIDE. [Suspect]
     Active Substance: GEMCITABINE HYDROCHLORIDE
     Indication: CHOLANGIOCARCINOMA
     Dosage: 1000 MG/M2, CYCLICAL
     Route: 042
  3. CISPLATINA [Suspect]
     Active Substance: CISPLATIN
     Indication: CHOLANGIOCARCINOMA
     Dosage: 25 MG/M2, CYCLICAL
     Route: 042

REACTIONS (3)
  - Hypomagnesaemia [Unknown]
  - Thrombocytopenia [Unknown]
  - Mucosal inflammation [Unknown]
